FAERS Safety Report 21416992 (Version 1)
Quarter: 2022Q4

REPORT INFORMATION
  Report Type: Spontaneous
  Country: US (occurrence: US)
  Receive Date: 20221006
  Receipt Date: 20221006
  Transmission Date: 20230113
  Serious: No
  Sender: FDA-Public Use
  Company Number: US-PFIZER INC-202201201389

PATIENT
  Age: 76 Year
  Sex: Female
  Weight: 86.18 kg

DRUGS (1)
  1. PAXLOVID [Suspect]
     Active Substance: NIRMATRELVIR\RITONAVIR
     Indication: COVID-19 treatment
     Dosage: NORMAL 2 OF ONE AND ONE OF ONE IN THE MORNING AND 2 OF ONE AND ONE OF ONE IN THE EVENING
     Route: 048
     Dates: start: 20220917

REACTIONS (9)
  - Pruritus [Unknown]
  - Rash [Recovering/Resolving]
  - Fatigue [Unknown]
  - Hyperhidrosis [Unknown]
  - Myalgia [Unknown]
  - Sleep disorder [Unknown]
  - Skin exfoliation [Unknown]
  - Contusion [Unknown]
  - Inappropriate schedule of product administration [Unknown]

NARRATIVE: CASE EVENT DATE: 20220901
